FAERS Safety Report 9114869 (Version 1)
Quarter: 2013Q1

REPORT INFORMATION
  Report Type: Report from Study
  Country: AR (occurrence: AR)
  Receive Date: 20130208
  Receipt Date: 20130208
  Transmission Date: 20140127
  Serious: Yes (Death, Hospitalization)
  Sender: FDA-Public Use
  Company Number: AR-ABBOTT-13P-007-1046093-00

PATIENT
  Age: 67 Year
  Sex: Male

DRUGS (4)
  1. HUMIRA [Suspect]
     Indication: CROHN^S DISEASE
     Dosage: FIRST DOSE
     Dates: start: 20130116, end: 20130116
  2. HUMIRA [Suspect]
     Dosage: SECOND DOSE
     Dates: start: 20130130, end: 20130202
  3. CORTICOIDS [Concomitant]
     Indication: PRODUCT USED FOR UNKNOWN INDICATION
  4. UNKNOWN MEDICATION [Concomitant]
     Indication: ARRHYTHMIA
     Dosage: DAILY

REACTIONS (5)
  - Myocardial infarction [Fatal]
  - Abdominal pain [Unknown]
  - Myocardial infarction [Fatal]
  - Myocardial infarction [Fatal]
  - Myocardial infarction [Fatal]
